FAERS Safety Report 18980163 (Version 1)
Quarter: 2021Q1

REPORT INFORMATION
  Report Type: Spontaneous
  Country: FR (occurrence: FR)
  Receive Date: 20210308
  Receipt Date: 20210308
  Transmission Date: 20210420
  Serious: Yes (Other)
  Sender: FDA-Public Use
  Company Number: FR-SA-2021SA064740

PATIENT
  Age: 86 Year
  Sex: Male

DRUGS (8)
  1. BUSCOPAN 20 MG COMPRIMES PELLICULES [Suspect]
     Active Substance: BUTYLSCOPOLAMINE BROMIDE
     Indication: ATRIAL FLUTTER
     Dosage: 1 DF, QD
     Route: 048
     Dates: start: 20210120
  2. BISOPROLOL FUMARATE. [Suspect]
     Active Substance: BISOPROLOL FUMARATE
     Indication: ATRIAL FLUTTER
     Dosage: 1 DF, QD
     Route: 048
     Dates: start: 20210120
  3. SYMBICORT [Suspect]
     Active Substance: BUDESONIDE\FORMOTEROL FUMARATE DIHYDRATE
     Indication: PRODUCT USED FOR UNKNOWN INDICATION
     Dosage: UNKNOWN
     Route: 055
     Dates: start: 20210119
  4. FOLIC ACID. [Suspect]
     Active Substance: FOLIC ACID
     Indication: VITAMIN SUPPLEMENTATION
     Dosage: UNKNOWN
     Route: 048
     Dates: start: 20210120
  5. LOVENOX [Suspect]
     Active Substance: ENOXAPARIN SODIUM
     Indication: CARDIOVASCULAR EVENT PROPHYLAXIS
     Route: 058
     Dates: start: 20210125, end: 20210127
  6. IOPROMIDE. [Suspect]
     Active Substance: IOPROMIDE
     Indication: SCAN
     Dosage: UNKNOWN
     Route: 042
     Dates: start: 20210125, end: 20210125
  7. KARDEGIC [Suspect]
     Active Substance: ASPIRIN DL-LYSINE
     Indication: CARDIOVASCULAR EVENT PROPHYLAXIS
     Dosage: 1 DF, QD
     Route: 048
     Dates: start: 20210121
  8. APIXABAN [Suspect]
     Active Substance: APIXABAN
     Indication: CARDIOVASCULAR EVENT PROPHYLAXIS
     Dosage: UNKNOWN
     Route: 048
     Dates: start: 202101, end: 20210125

REACTIONS (2)
  - Eosinophilia [Not Recovered/Not Resolved]
  - Drug eruption [Not Recovered/Not Resolved]

NARRATIVE: CASE EVENT DATE: 20210127
